FAERS Safety Report 17783321 (Version 3)
Quarter: 2020Q2

REPORT INFORMATION
  Report Type: Spontaneous
  Country: US (occurrence: US)
  Receive Date: 20200514
  Receipt Date: 20200528
  Transmission Date: 20200714
  Serious: No
  Sender: FDA-Public Use
  Company Number: US-PFIZER INC-2020191157

PATIENT
  Age: 89 Year
  Sex: Male

DRUGS (1)
  1. XELJANZ XR [Suspect]
     Active Substance: TOFACITINIB CITRATE
     Dosage: 11 MG

REACTIONS (5)
  - Hypoacusis [Unknown]
  - Foot deformity [Unknown]
  - Memory impairment [Unknown]
  - Drug ineffective [Unknown]
  - Pain in extremity [Unknown]
